FAERS Safety Report 6875634-5 (Version None)
Quarter: 2010Q3

REPORT INFORMATION
  Report Type: 
  Country: None (occurrence: None)
  Receive Date: 20100727
  Receipt Date: 20070712
  Transmission Date: 20110219
  Serious: Yes (Hospitalization, Other)
  Sender: FDA-Public Use
  Company Number: US-PFIZER INC-2006112411

PATIENT
  Sex: Male
  Weight: 97.5 kg

DRUGS (3)
  1. CELEBREX [Suspect]
     Indication: PAIN
     Route: 048
     Dates: start: 19990101, end: 19991001
  2. VIOXX [Suspect]
     Indication: ARTHRITIS
     Route: 048
     Dates: start: 19991001, end: 20040901
  3. LISINOPRIL [Concomitant]
     Dates: start: 19990101

REACTIONS (1)
  - MYOCARDIAL INFARCTION [None]
